FAERS Safety Report 12985008 (Version 1)
Quarter: 2016Q4

REPORT INFORMATION
  Report Type: Spontaneous
  Country: JP (occurrence: JP)
  Receive Date: 20161129
  Receipt Date: 20161129
  Transmission Date: 20170207
  Serious: Yes (Other)
  Sender: FDA-Public Use
  Company Number: JP-ALLERGAN-1678109US

PATIENT
  Age: 55 Year
  Sex: Male

DRUGS (1)
  1. BOTOX [Suspect]
     Active Substance: ONABOTULINUMTOXINA
     Indication: PRODUCT USED FOR UNKNOWN INDICATION
     Dosage: UNK, SINGLE
     Route: 030

REACTIONS (5)
  - Aspiration [Unknown]
  - Increased bronchial secretion [Unknown]
  - Pharyngeal injury [Unknown]
  - Epiglottis ulcer [Recovered/Resolved]
  - Pyrexia [Unknown]
